FAERS Safety Report 17499873 (Version 1)
Quarter: 2020Q1

REPORT INFORMATION
  Report Type: Spontaneous
  Country: CA (occurrence: CA)
  Receive Date: 20200305
  Receipt Date: 20200305
  Transmission Date: 20200409
  Serious: Yes (Hospitalization, Other)
  Sender: FDA-Public Use
  Company Number: CA-TEVA-2020-CA-1193345

PATIENT
  Age: 29 Year
  Sex: Female

DRUGS (2)
  1. PROGESTERONE. [Suspect]
     Active Substance: PROGESTERONE
     Indication: PREGNANCY
     Dosage: 4 MILLIGRAM DAILY;
     Route: 048
  2. CRINONE [Suspect]
     Active Substance: PROGESTERONE
     Indication: PREGNANCY
     Dosage: 40 MILLIGRAM DAILY;
     Route: 065

REACTIONS (6)
  - Pyogenic granuloma [Recovered/Resolved]
  - Speech disorder [Recovered/Resolved]
  - Live birth [Recovered/Resolved]
  - Contraindicated product administered [Recovered/Resolved]
  - Mastication disorder [Recovered/Resolved]
  - Maternal exposure during pregnancy [Recovered/Resolved]
